FAERS Safety Report 9008015 (Version 1)
Quarter: 2012Q4

REPORT INFORMATION
  Report Type: Spontaneous
  Country: SE (occurrence: None)
  Receive Date: 20121227
  Receipt Date: 20121227
  Transmission Date: 20130627
  Serious: Yes (Hospitalization, Other)
  Sender: FDA-Public Use
  Company Number: AUR-APL-2012-05573

PATIENT
  Age: 66 Year
  Sex: Female

DRUGS (7)
  1. METFORMIN (METFORMIN) [Suspect]
     Indication: DIABETES MELLITUS
  2. MINDIAB [Suspect]
     Indication: DIABETES MELLITUS
  3. ENALAPRIL [Suspect]
     Indication: BENIGN ESSENTIAL HYPERTENSION
  4. SIMVASTATIN (SIMVASTATIN) [Concomitant]
  5. FENURIL (FENURIL /01015901/) [Concomitant]
  6. LOGIMAX (MODILOC) [Concomitant]
  7. RHINOCORT AQUA (BUDESONIDE) [Concomitant]

REACTIONS (4)
  - Renal failure acute [None]
  - Lactic acidosis [None]
  - Gastroenteritis [None]
  - Nephrogenic anaemia [None]
